FAERS Safety Report 9032623 (Version 1)
Quarter: 2013Q1

REPORT INFORMATION
  Report Type: Spontaneous
  Country: US (occurrence: None)
  Receive Date: 20130109
  Receipt Date: 20130109
  Transmission Date: 20140127
  Serious: Yes (Hospitalization)
  Sender: FDA-Public Use
  Company Number: FK201204200

PATIENT
  Age: 74 Year
  Sex: Female
  Weight: 62.9 kg

DRUGS (27)
  1. DEXAMETHASONE INJECTION (MANUFACTURER UNKNOWN) (DEXAMETHASONE SODIUM PHOSPHATE) (DEMXAMETHASONE SODIUM PHOSPHATE) [Suspect]
     Indication: PLASMA CELL MYELOMA
     Dosage: DAILY FOR 4 DAYS, INTRAVENOUS (NOT OTHERWISE SPECIFIED)?
     Route: 042
     Dates: start: 20110610, end: 20110701
  2. DEXAMETHASONE INJECTION (MANUFACTURER UNKNOWN) (DEXAMETHASONE SODIUM PHOSPHATE) (DEMXAMETHASONE SODIUM PHOSPHATE) [Suspect]
     Indication: PLASMA CELL MYELOMA
     Dosage: DAILY FOR 4 DAYS, INTRAVENOUS (NOT OTHERWISE SPECIFIED)?
     Route: 042
     Dates: start: 20110610, end: 20110701
  3. VELCADE (BORTEZOMIB) [Suspect]
     Dosage: DAYS 1, 3, 8 AND 10, INTRAVENOUS (NOT OTHERWISE SPECIFIED)?
     Dates: start: 20110610, end: 20110715
  4. CYCLOPHOSPHAMIDE (CYCLOPHOSPHAMIDE) [Suspect]
     Dosage: 500 MG, DAYS 1, 8, 15, AND 22, INTRAVENOUS (NOT OTHERWISE SPECIFIED)
     Route: 042
     Dates: start: 20110610, end: 20110701
  5. AMLODIPINE (AMLODIPINE) [Concomitant]
  6. CALCITONIN (CALCITONIN) [Concomitant]
  7. DIPHENHYDRAMINE (DIPHENHYDRAMINE) [Concomitant]
  8. FLUOXETINE (FLUOXETINE) [Concomitant]
  9. GABAPENTIN (GABAPENTIN) [Concomitant]
  10. HALOPERIDOL (HALOPERIDOL) (HALOPERIDOL) [Concomitant]
  11. HEPARIN (HEPARIN) [Concomitant]
  12. HYDROXYZINE (HYDROXYZINE) [Concomitant]
  13. LORAZEPAM (LORAZEPAM) [Concomitant]
  14. MEGESTROL (MEGESTROL) [Concomitant]
  15. METRONIDAZOLE (METRONIDAZOLE) [Concomitant]
  16. OXYCODONE (OXYCODONE) [Concomitant]
  17. PANTOPRAZOLE (PANTOPRAZOLE) [Concomitant]
  18. PRAMOXINE [Concomitant]
  19. PROCHLORPERAZINE (PROCHLORPERAZINE) [Concomitant]
  20. SENNISIDES [Concomitant]
  21. DOCUSATE (DOCUSATE) [Concomitant]
  22. SEVELAMER (SEVELAMER) [Concomitant]
  23. SIMETHICONE (DIMETICONE, ACTIVATED) [Concomitant]
  24. SKIN PROTECTANTS [Concomitant]
  25. SODIUM CHLORIDE (SODIUM CHLORIDE) [Concomitant]
  26. VALACICLOVIR (VALACICLOIR) [Concomitant]
  27. XYLOXYLIN [Concomitant]

REACTIONS (4)
  - Mental status changes [None]
  - Hypercalcaemia [None]
  - Renal failure [None]
  - Plasma cell myeloma [None]
